FAERS Safety Report 23246177 (Version 1)
Quarter: 2023Q4

REPORT INFORMATION
  Report Type: Spontaneous
  Country: US (occurrence: US)
  Receive Date: 20231130
  Receipt Date: 20231130
  Transmission Date: 20240110
  Serious: No
  Sender: FDA-Public Use
  Company Number: US-ALVOGEN-2023091844

PATIENT

DRUGS (1)
  1. TERIPARATIDE [Suspect]
     Active Substance: TERIPARATIDE
     Indication: Product used for unknown indication
     Dosage: EXPIRATION DATE: 31-AUG-2024.?SN 037666425587?GTIN 00347781652890?STRENGTH: 250 UG/ML

REACTIONS (4)
  - Product use issue [Unknown]
  - Product packaging issue [Unknown]
  - Product contamination physical [Unknown]
  - Device malfunction [Unknown]
